FAERS Safety Report 7353852-X (Version None)
Quarter: 2011Q1

REPORT INFORMATION
  Report Type: 
  Country: None (occurrence: None)
  Receive Date: 20110315
  Receipt Date: 20110304
  Transmission Date: 20110831
  Serious: Yes (Other)
  Sender: FDA-Public Use
  Company Number: US-US-EMD SERONO, INC.-7045940

PATIENT
  Sex: Female

DRUGS (2)
  1. STEROIDS [Suspect]
  2. REBIF [Suspect]
     Indication: PRODUCT USED FOR UNKNOWN INDICATION
     Route: 058
     Dates: start: 20060413

REACTIONS (2)
  - OSTEONECROSIS [None]
  - INJECTION SITE PAIN [None]
